FAERS Safety Report 4978099-3 (Version None)
Quarter: 2006Q2

REPORT INFORMATION
  Report Type: 
  Country: None (occurrence: None)
  Receive Date: 20060417
  Receipt Date: 20060412
  Transmission Date: 20061013
  Serious: Yes (Other)
  Sender: FDA-Public Use
  Company Number: S06-USA-01439-01

PATIENT
  Age: 55 Year
  Sex: Female

DRUGS (8)
  1. CELEXA [Suspect]
     Indication: DEPRESSION
     Dosage: 40 MG QD PO
     Route: 048
     Dates: start: 20051209, end: 20060221
  2. CELEXA [Suspect]
     Indication: DEPRESSION
     Dates: start: 20060228, end: 20060101
  3. ZYPREXA [Suspect]
     Indication: BIPOLAR DISORDER
     Dates: start: 20060228, end: 20060101
  4. ZOLOFT [Concomitant]
  5. ARIMIDEX [Concomitant]
  6. ELAVIL [Concomitant]
  7. BLOOD PRESSURE MEDICATION (NOS) [Concomitant]
  8. CHOLESTEROL MEDICATION (NOS) [Concomitant]

REACTIONS (12)
  - AGITATION [None]
  - BIPOLAR DISORDER [None]
  - HALLUCINATION, AUDITORY [None]
  - INSOMNIA [None]
  - IRRITABILITY [None]
  - LOGORRHOEA [None]
  - LOSS OF EMPLOYMENT [None]
  - MANIA [None]
  - PARANOIA [None]
  - PSYCHOMOTOR HYPERACTIVITY [None]
  - TREATMENT NONCOMPLIANCE [None]
  - URTICARIA [None]
